FAERS Safety Report 9649090 (Version 1)
Quarter: 2013Q4

REPORT INFORMATION
  Report Type: Other
  Country: FR (occurrence: FR)
  Receive Date: 20131028
  Receipt Date: 20131028
  Transmission Date: 20140711
  Serious: Yes (Other)
  Sender: FDA-Public Use
  Company Number: FR-BRISTOL-MYERS SQUIBB COMPANY-19617141

PATIENT
  Age: 60 Year
  Sex: Male

DRUGS (1)
  1. IFOSFAMIDE [Suspect]

REACTIONS (1)
  - Wrong drug administered [Unknown]
